FAERS Safety Report 25338850 (Version 4)
Quarter: 2025Q3

REPORT INFORMATION
  Report Type: Spontaneous
  Country: JP (occurrence: JP)
  Receive Date: 20250520
  Receipt Date: 20250730
  Transmission Date: 20251021
  Serious: Yes (Other)
  Sender: NOVARTIS
  Company Number: JP-002147023-NVSJ2025JP002581

PATIENT
  Age: 76 Year
  Sex: Female
  Weight: 56 kg

DRUGS (16)
  1. BEOVU [Suspect]
     Active Substance: BROLUCIZUMAB-DBLL
     Indication: Neovascular age-related macular degeneration
     Dosage: 6 MG, RIGHT EYE
     Route: 031
     Dates: start: 20250108, end: 20250108
  2. EYLEA [Concomitant]
     Active Substance: AFLIBERCEPT
     Indication: Neovascular age-related macular degeneration
     Route: 031
     Dates: start: 20230522
  3. EYLEA [Concomitant]
     Active Substance: AFLIBERCEPT
     Route: 031
  4. EYLEA [Concomitant]
     Active Substance: AFLIBERCEPT
     Route: 031
  5. EYLEA [Concomitant]
     Active Substance: AFLIBERCEPT
     Route: 031
  6. EYLEA [Concomitant]
     Active Substance: AFLIBERCEPT
     Route: 031
  7. EYLEA [Concomitant]
     Active Substance: AFLIBERCEPT
     Route: 031
  8. EYLEA [Concomitant]
     Active Substance: AFLIBERCEPT
     Route: 031
  9. EYLEA [Concomitant]
     Active Substance: AFLIBERCEPT
     Route: 031
  10. EYLEA [Concomitant]
     Active Substance: AFLIBERCEPT
     Route: 031
  11. EYLEA [Concomitant]
     Active Substance: AFLIBERCEPT
     Route: 031
     Dates: start: 20250130, end: 20250130
  12. MOXIFLOXACIN [Concomitant]
     Active Substance: MOXIFLOXACIN
     Indication: Product used for unknown indication
     Route: 047
     Dates: start: 20250105
  13. TRIAMCINOLONE ACETONIDE [Concomitant]
     Active Substance: TRIAMCINOLONE ACETONIDE
     Indication: Neovascular age-related macular degeneration
     Route: 047
     Dates: start: 20250108, end: 20250108
  14. Telmisartan dsep [Concomitant]
     Indication: Product used for unknown indication
     Route: 048
  15. AMLODIPINE [Concomitant]
     Active Substance: AMLODIPINE BESYLATE
     Indication: Product used for unknown indication
     Route: 048
  16. TRICHLORMETHIAZIDE [Concomitant]
     Active Substance: TRICHLORMETHIAZIDE
     Indication: Product used for unknown indication
     Route: 048

REACTIONS (10)
  - Retinal artery occlusion [Not Recovered/Not Resolved]
  - Blindness unilateral [Unknown]
  - Eye pain [Unknown]
  - Keratic precipitates [Unknown]
  - Anterior chamber inflammation [Unknown]
  - Cerebral artery stenosis [Unknown]
  - Blood pressure increased [Unknown]
  - Uveitis [Unknown]
  - Episcleritis [Recovering/Resolving]
  - Arteriosclerosis [Unknown]

NARRATIVE: CASE EVENT DATE: 20250127
